FAERS Safety Report 25364115 (Version 9)
Quarter: 2025Q4

REPORT INFORMATION
  Report Type: Report from Study
  Country: CH (occurrence: CH)
  Receive Date: 20250527
  Receipt Date: 20251231
  Transmission Date: 20260118
  Serious: Yes (Hospitalization)
  Sender: DAIICHI
  Company Number: CH-DSJP-DS-2025-141595-CH

PATIENT
  Age: 80 Year
  Sex: Female
  Weight: 82 kg

DRUGS (8)
  1. ENHERTU [Suspect]
     Active Substance: FAM-TRASTUZUMAB DERUXTECAN-NXKI
     Indication: HER2 low breast cancer
     Dosage: 5.4 MG/KG, CYCLIC (2ND LINE) (5TH LINE)
     Route: 042
     Dates: start: 20250505, end: 20250505
  2. ENHERTU [Suspect]
     Active Substance: FAM-TRASTUZUMAB DERUXTECAN-NXKI
     Indication: Breast cancer metastatic
     Dosage: 2.7 MG/KG, CYCLIC
     Route: 042
     Dates: start: 20250624
  3. METOPROLOL [Concomitant]
     Active Substance: METOPROLOL
     Indication: Hypertension
     Dosage: 25 MG, QD
     Route: 048
  4. TORSEMIDE [Concomitant]
     Active Substance: TORSEMIDE
     Indication: Hypertension
     Dosage: 5 MG, QD
     Route: 048
  5. TORSEMIDE [Concomitant]
     Active Substance: TORSEMIDE
     Indication: Chronic kidney disease
  6. TORSEMIDE [Concomitant]
     Active Substance: TORSEMIDE
     Indication: Peripheral venous disease
  7. HUMALOG KWIKPEN [Concomitant]
     Active Substance: INSULIN LISPRO
     Indication: Diabetes mellitus
     Dosage: UNK IU, TID
     Route: 058
  8. COLCHICINE [Concomitant]
     Active Substance: COLCHICINE
     Indication: Gout
     Dosage: 1 MG, BID
     Route: 048
     Dates: start: 20250531, end: 20250603

REACTIONS (8)
  - Agranulocytosis [Recovered/Resolved]
  - Platelet count decreased [Recovered/Resolved]
  - Diarrhoea [Recovered/Resolved with Sequelae]
  - Anaemia [Recovered/Resolved]
  - Platelet count decreased [Recovered/Resolved]
  - Diarrhoea [Not Recovered/Not Resolved]
  - Alopecia [Not Recovered/Not Resolved]
  - Anaemia [Not Recovered/Not Resolved]

NARRATIVE: CASE EVENT DATE: 20250513
